FAERS Safety Report 10249892 (Version 1)
Quarter: 2014Q2

REPORT INFORMATION
  Report Type: Spontaneous
  Country: US (occurrence: US)
  Receive Date: 20140620
  Receipt Date: 20140620
  Transmission Date: 20141212
  Serious: Yes (Other)
  Sender: FDA-Public Use
  Company Number: US-FRI-1000068315

PATIENT
  Age: 85 Year
  Sex: Female

DRUGS (6)
  1. LINZESS [Suspect]
     Indication: CONSTIPATION
     Dosage: 145 MCG EVERY FOURTH DAY
     Route: 048
     Dates: start: 20140606
  2. LOSARTAN [Concomitant]
     Dosage: 100 MG
     Route: 048
  3. DIGOXIN [Concomitant]
     Dosage: 125 MCG
     Route: 048
  4. ASPIRIN [Concomitant]
     Dosage: 81 MG
     Route: 048
  5. CARVEDILOL [Concomitant]
     Dosage: 6.25 MG
     Route: 048
  6. STOOL SOFTENER NOS [Concomitant]
     Indication: CONSTIPATION

REACTIONS (1)
  - Blindness [Recovering/Resolving]
